FAERS Safety Report 8964623 (Version 1)
Quarter: 2012Q4

REPORT INFORMATION
  Report Type: 
  Country: US (occurrence: US)
  Receive Date: 20121213
  Receipt Date: 20121213
  Transmission Date: 20130627
  Serious: No
  Sender: FDA-Public Use
  Company Number: US-PFIZER INC-2012313021

PATIENT
  Age: 65 Year
  Sex: Female
  Weight: 74.83 kg

DRUGS (4)
  1. GABAPENTIN [Suspect]
     Indication: ARTHRITIS
     Dosage: 600 mg, 3x/day
     Route: 048
     Dates: start: 201211, end: 201211
  2. GABAPENTIN [Suspect]
     Indication: NEUROPATHY
  3. AMITRIPTYLINE [Concomitant]
     Indication: NERVOUS SYSTEM DISORDER
     Dosage: 25 mg, 3x/day
     Route: 048
  4. AMITRIPTYLINE [Concomitant]
     Indication: SLEEP PROBLEM

REACTIONS (2)
  - Drug ineffective [Unknown]
  - Paraesthesia [Unknown]
